FAERS Safety Report 7432197-3 (Version None)
Quarter: 2011Q2

REPORT INFORMATION
  Report Type: 
  Country: None (occurrence: None)
  Receive Date: 20110422
  Receipt Date: 20110413
  Transmission Date: 20111010
  Serious: Yes (Death, Life-Threatening, Hospitalization, Disabling)
  Sender: FDA-Public Use
  Company Number: ES-SANOFI-AVENTIS-200812944GDDC

PATIENT
  Age: 74 Year
  Sex: Male
  Weight: 69 kg

DRUGS (17)
  1. AFLIBERCEPT [Suspect]
     Dosage: DOSE UNIT: 6 MG/KG
     Route: 042
     Dates: start: 20071207, end: 20071207
  2. AFLIBERCEPT [Suspect]
     Dosage: DOSE UNIT: 6 MG/KG
     Route: 042
     Dates: start: 20080325, end: 20080325
  3. APIRETAL [Concomitant]
     Dosage: DOSE AS USED: UNK
     Dates: start: 20080111, end: 20080219
  4. ZOCOR [Concomitant]
     Dosage: DOSE AS USED: UNK
     Dates: start: 20060501
  5. IMIPENEM [Concomitant]
     Dosage: DOSE AS USED: UNK
     Dates: start: 20080401, end: 20080404
  6. LIDOCAINE [Concomitant]
     Dosage: DOSE AS USED: UNK
     Dates: start: 20080405, end: 20080407
  7. CHLORTHALIDONE [Concomitant]
     Dosage: DOSE AS USED: UNK
  8. DOCETAXEL [Suspect]
     Dosage: DOSE UNIT: 75 MG/M**2
     Route: 042
     Dates: start: 20080325, end: 20080325
  9. PANTOPRAZOLE [Concomitant]
     Dosage: DOSE AS USED: UNK
     Dates: start: 20080405, end: 20080407
  10. OMEPRAZOLE [Concomitant]
     Dosage: DOSE AS USED: UNK
  11. AMLODIPINE BESYLATE [Concomitant]
     Dosage: DOSE AS USED: UNK
     Dates: start: 20050101
  12. ATENOLOL/CHLORTALIDONE [Concomitant]
     Dosage: DOSE AS USED: UNK
     Dates: start: 20050101
  13. DOCETAXEL [Suspect]
     Dosage: DOSE UNIT: 75 MG/M**2
     Route: 042
     Dates: start: 20071207, end: 20071207
  14. PREDNISOLONE [Suspect]
     Route: 048
     Dates: start: 20071212, end: 20080401
  15. ENOXAPARIN [Concomitant]
     Dosage: DOSE AS USED: UNK
     Dates: start: 20080405, end: 20080407
  16. GRANISETRON HCL [Concomitant]
     Dosage: DOSE AS USED: UNK
     Dates: start: 20071212, end: 20080325
  17. CIPROFLOXACIN [Concomitant]
     Dosage: DOSE AS USED: UNK
     Dates: start: 20080405, end: 20080415

REACTIONS (2)
  - RADICULOPATHY [None]
  - NEUTROPENIC INFECTION [None]
